FAERS Safety Report 13892871 (Version 1)
Quarter: 2017Q3

REPORT INFORMATION
  Report Type: Spontaneous
  Country: US (occurrence: US)
  Receive Date: 20170822
  Receipt Date: 20170822
  Transmission Date: 20171127
  Serious: No
  Sender: FDA-Public Use
  Company Number: US-ROCHE-1130120

PATIENT
  Sex: Female

DRUGS (6)
  1. HERCEPTIN [Suspect]
     Active Substance: TRASTUZUMAB
     Indication: BREAST CANCER
     Route: 065
     Dates: start: 19981103
  2. TYLENOL [Concomitant]
     Active Substance: ACETAMINOPHEN
  3. VALIUM [Concomitant]
     Active Substance: DIAZEPAM
  4. AREDIA [Concomitant]
     Active Substance: PAMIDRONATE DISODIUM
     Route: 065
  5. GEMZAR [Concomitant]
     Active Substance: GEMCITABINE HYDROCHLORIDE
     Route: 065
     Dates: start: 19990211
  6. DECADRON [Concomitant]
     Active Substance: DEXAMETHASONE
     Route: 065

REACTIONS (5)
  - Fatigue [Unknown]
  - Skin lesion [Recovered/Resolved]
  - Headache [Recovered/Resolved]
  - Neck pain [Recovered/Resolved]
  - Lymphadenopathy [Recovered/Resolved]
